FAERS Safety Report 20461905 (Version 1)
Quarter: 2022Q1

REPORT INFORMATION
  Report Type: Spontaneous
  Country: US (occurrence: US)
  Receive Date: 20220211
  Receipt Date: 20220211
  Transmission Date: 20220423
  Serious: No
  Sender: FDA-Public Use
  Company Number: US-SA-SAC20220207000286

PATIENT
  Sex: Male

DRUGS (2)
  1. DUPIXENT [Suspect]
     Active Substance: DUPILUMAB
     Indication: Product used for unknown indication
     Dosage: 200 MG,QOW
     Route: 058
     Dates: start: 2021
  2. LORATADINE [Concomitant]
     Active Substance: LORATADINE
     Dosage: 10  MC

REACTIONS (3)
  - Pruritus [Unknown]
  - Dry skin [Unknown]
  - Product dose omission issue [Unknown]
